FAERS Safety Report 5692600-6 (Version None)
Quarter: 2008Q2

REPORT INFORMATION
  Report Type: 
  Country: None (occurrence: None)
  Receive Date: 20080402
  Receipt Date: 20080306
  Transmission Date: 20081010
  Serious: No
  Sender: FDA-Public Use
  Company Number: US-BOEHRINGER INGELHEIM GMBH, GERMANY-2008-BP-03539BP

PATIENT
  Sex: Female

DRUGS (2)
  1. SPIRIVA [Suspect]
     Indication: MIDDLE LOBE SYNDROME
     Route: 055
     Dates: start: 20070227, end: 20070524
  2. SPIRIVA [Suspect]
     Route: 055
     Dates: start: 20070524

REACTIONS (5)
  - DYSURIA [None]
  - FALL [None]
  - PLEURISY [None]
  - VERTIGO [None]
  - VISION BLURRED [None]
